FAERS Safety Report 8270852-6 (Version None)
Quarter: 2012Q2

REPORT INFORMATION
  Report Type: 
  Country: None (occurrence: None)
  Receive Date: 20120410
  Receipt Date: 20120410
  Transmission Date: 20120825
  Serious: No
  Sender: FDA-Public Use
  Company Number: None

PATIENT
  Sex: Female

DRUGS (2)
  1. HALDOL [Suspect]
  2. CLOZARIL [Concomitant]

REACTIONS (1)
  - SALIVARY HYPERSECRETION [None]
